FAERS Safety Report 8011210-9 (Version None)
Quarter: 2011Q4

REPORT INFORMATION
  Report Type: 
  Country: None (occurrence: None)
  Receive Date: 20111222
  Receipt Date: 20111212
  Transmission Date: 20120403
  Serious: Yes (Other)
  Sender: FDA-Public Use
  Company Number: 1139788

PATIENT
  Age: 51 Year
  Sex: Male

DRUGS (4)
  1. TIGECYCLINE [Concomitant]
  2. MEROPENEM [Suspect]
     Indication: SEPSIS
     Dosage: 1 G EVERY 8 H, INTRAVENOUS DRIP
     Route: 041
  3. COLISTIN SULFATE [Suspect]
     Indication: SEPSIS
     Dosage: 3 MILLION UNITS Q8 H
  4. VANCOMYCIN [Concomitant]

REACTIONS (11)
  - LEG AMPUTATION [None]
  - DRUG INTERACTION [None]
  - POSTOPERATIVE WOUND INFECTION [None]
  - CONVULSION [None]
  - SHOCK [None]
  - FUNGAL SEPSIS [None]
  - APNOEIC ATTACK [None]
  - HAEMODIALYSIS [None]
  - PNEUMONIA [None]
  - CARDIOVASCULAR INSUFFICIENCY [None]
  - NEUROTOXICITY [None]
